FAERS Safety Report 5195961-X (Version None)
Quarter: 2006Q4

REPORT INFORMATION
  Report Type: 
  Country: None (occurrence: None)
  Receive Date: 20061227
  Receipt Date: 20061221
  Transmission Date: 20070319
  Serious: Yes (Life-Threatening)
  Sender: FDA-Public Use
  Company Number: 163-20785-06120973

PATIENT
  Age: 79 Year
  Sex: Female
  Weight: 63.9572 kg

DRUGS (16)
  1. THALOMID [Suspect]
     Indication: MULTIPLE MYELOMA
     Dosage: 100 MG, DAILY, ORAL
     Route: 048
     Dates: start: 20060913, end: 20060926
  2. DEXAMETHASONE TAB [Suspect]
     Indication: MULTIPLE MYELOMA
     Dosage: 40 MG, DAILY, ORAL
     Route: 048
     Dates: start: 20060913, end: 20061011
  3. GLUCOSAMINE WITH CHONDROITIN SULFATE (GLUCOSAMINE W/CHONDROITIN SULFAT [Concomitant]
  4. OMEPRAZOLE [Concomitant]
  5. CYANOCOBALAMIN [Concomitant]
  6. DOCUSATE SODIUM (DOCUSATE SODIUM) [Concomitant]
  7. LEVOFLOXACIN [Concomitant]
  8. ACYCLOVIR [Concomitant]
  9. DAPSONE [Concomitant]
  10. WARFARIN SODIUM [Concomitant]
  11. NYSTATIN [Concomitant]
  12. CALCIUM (CALCIUM) [Concomitant]
  13. ASCORBIC ACID [Concomitant]
  14. MULTIVITAMINS WITH IRON (MULTIVITAMINS AND IRON) [Concomitant]
  15. OCUVITE WITH LUTEIN (OCUVITE) [Concomitant]
  16. ERGOCALCIFEROL (ERGOCALCIFEROL) [Concomitant]

REACTIONS (4)
  - ATRIAL FIBRILLATION [None]
  - BUNDLE BRANCH BLOCK RIGHT [None]
  - INTERNATIONAL NORMALISED RATIO ABNORMAL [None]
  - OXYGEN SATURATION DECREASED [None]
